FAERS Safety Report 18548302 (Version 1)
Quarter: 2020Q4

REPORT INFORMATION
  Report Type: Other
  Country: CA (occurrence: CA)
  Receive Date: 20201126
  Receipt Date: 20201126
  Transmission Date: 20210114
  Serious: Yes (Other)
  Sender: FDA-Public Use
  Company Number: CA-CELLTRION INC.-2020CA032144

PATIENT

DRUGS (3)
  1. RITUXIMAB (UNKNOWN) [Suspect]
     Active Substance: RITUXIMAB
     Indication: IMMUNE THROMBOCYTOPENIA
     Dosage: 580 MILLIGRAM 1 EVERY 1 WEEKS
     Route: 042
  2. DIPHENHYDRAMINE. [Concomitant]
     Active Substance: DIPHENHYDRAMINE
     Indication: PREMEDICATION
     Dosage: 50 MILLIGRAM
     Route: 048
  3. ACETAMINOPHEN. [Concomitant]
     Active Substance: ACETAMINOPHEN
     Indication: PREMEDICATION
     Dosage: 650 MILLIGRAM
     Route: 048

REACTIONS (10)
  - Heart rate increased [Unknown]
  - Viral infection [Unknown]
  - Pyrexia [Unknown]
  - Off label use [Unknown]
  - Syncope [Unknown]
  - Respiratory rate increased [Unknown]
  - Nausea [Unknown]
  - Intentional product use issue [Unknown]
  - Rash [Unknown]
  - Blood pressure diastolic abnormal [Unknown]
